FAERS Safety Report 4999259-1 (Version None)
Quarter: 2006Q2

REPORT INFORMATION
  Report Type: 
  Country: None (occurrence: None)
  Receive Date: 20060511
  Receipt Date: 20051206
  Transmission Date: 20061013
  Serious: Yes (Other)
  Sender: FDA-Public Use
  Company Number: PHMT2005CA00759

PATIENT
  Age: 51 Year
  Sex: Female

DRUGS (3)
  1. CLOZARIL [Suspect]
     Indication: SCHIZOPHRENIA
     Dosage: 250 MG, QHS
     Route: 048
     Dates: start: 20040924, end: 20051122
  2. BUPROPION [Concomitant]
     Dosage: 150 MG PER DAY
     Route: 048
  3. CITALOPRAM HYDROBROMIDE [Concomitant]
     Dosage: UNK, QD

REACTIONS (3)
  - CELLULITIS [None]
  - NEUTROPENIA [None]
  - PAROTITIS [None]
